FAERS Safety Report 22247883 (Version 1)
Quarter: 2023Q2

REPORT INFORMATION
  Report Type: Spontaneous
  Country: US (occurrence: US)
  Receive Date: 20230425
  Receipt Date: 20230425
  Transmission Date: 20230722
  Serious: No
  Sender: FDA-Public Use
  Company Number: ALC2022US003656

PATIENT
  Age: 69 Year
  Sex: Male

DRUGS (2)
  1. TETRACAINE HCL [Suspect]
     Active Substance: TETRACAINE HYDROCHLORIDE
     Indication: Analgesic therapy
     Dosage: 1 DRP EVERY 5 MINUTES FOR TOTAL OF 3 DOSES
     Route: 047
     Dates: start: 20220720, end: 20220720
  2. TETRACAINE HCL [Suspect]
     Active Substance: TETRACAINE HYDROCHLORIDE
     Dosage: 1 DRP EVERY 5 MINUTES FOR TOTAL OF 3 DOSES
     Route: 047
     Dates: start: 20220720, end: 20220720

REACTIONS (4)
  - Eye pruritus [Unknown]
  - Drug ineffective [Unknown]
  - Eye irritation [Unknown]
  - Eye pain [Unknown]

NARRATIVE: CASE EVENT DATE: 20220720
